FAERS Safety Report 6272545-3 (Version None)
Quarter: 2009Q3

REPORT INFORMATION
  Report Type: 
  Country: None (occurrence: None)
  Receive Date: 20090717
  Receipt Date: 20090708
  Transmission Date: 20100115
  Serious: Yes (Other)
  Sender: FDA-Public Use
  Company Number: PHHY2009MX28088

PATIENT
  Age: 56 Year
  Sex: Female

DRUGS (3)
  1. EXFORGE [Suspect]
     Indication: HYPERTENSION
     Dosage: 1 TABLET/DAY
     Route: 048
     Dates: start: 20090608
  2. OMEPRAZOLE [Concomitant]
     Indication: REFLUX OESOPHAGITIS
     Dosage: 1 TABLET/DAY
     Dates: start: 20060701
  3. FOSAMAX [Concomitant]
     Indication: OSTEOPENIA
     Dosage: 1 TABLET/DAY

REACTIONS (3)
  - ARTERIOSCLEROSIS CORONARY ARTERY [None]
  - BREAST CANCER [None]
  - OSTEOPENIA [None]
